FAERS Safety Report 4502946-2 (Version None)
Quarter: 2004Q4

REPORT INFORMATION
  Report Type: 
  Country: None (occurrence: None)
  Receive Date: 20041117
  Receipt Date: 20041018
  Transmission Date: 20050328
  Serious: Yes (Other)
  Sender: FDA-Public Use
  Company Number: 200413488JP

PATIENT
  Age: 60 Year
  Sex: Female

DRUGS (9)
  1. ARAVA [Suspect]
     Indication: RHEUMATOID ARTHRITIS
     Route: 048
     Dates: start: 20031017, end: 20040302
  2. IMURAN [Concomitant]
     Indication: MUSCULOSKELETAL PAIN
     Route: 048
     Dates: end: 20031016
  3. RINDERON [Concomitant]
     Indication: MUSCULOSKELETAL PAIN
     Route: 048
  4. LOXONIN [Concomitant]
     Indication: PAIN
     Route: 048
     Dates: start: 20030415, end: 20031021
  5. BONALON [Concomitant]
     Indication: OSTEOPOROSIS
     Route: 048
     Dates: start: 20020122
  6. ALOSENN [Concomitant]
     Indication: CONSTIPATION
     Route: 048
  7. EURODIN [Concomitant]
     Indication: INSOMNIA
     Route: 048
  8. CYTOTEC [Concomitant]
     Indication: PROPHYLAXIS AGAINST GASTROINTESTINAL ULCER
     Route: 048
     Dates: start: 20020226
  9. LAXOBERON [Concomitant]
     Indication: CONSTIPATION
     Route: 048
     Dates: end: 20031017

REACTIONS (2)
  - ALANINE AMINOTRANSFERASE INCREASED [None]
  - ASPARTATE AMINOTRANSFERASE INCREASED [None]
